FAERS Safety Report 21583679 (Version 1)
Quarter: 2022Q4

REPORT INFORMATION
  Report Type: Spontaneous
  Country: CN (occurrence: None)
  Receive Date: 20221111
  Receipt Date: 20221111
  Transmission Date: 20230113
  Serious: Yes (Other)
  Sender: FDA-Public Use
  Company Number: 2022A372497

PATIENT
  Sex: Female
  Weight: 65 kg

DRUGS (2)
  1. LYNPARZA [Suspect]
     Active Substance: OLAPARIB
     Indication: Rectal cancer
     Dosage: 150 MG, BID
     Route: 048
     Dates: start: 20220701, end: 20221014
  2. KEYTRUDA [Suspect]
     Active Substance: PEMBROLIZUMAB
     Indication: Rectal cancer
     Dosage: 200 MG, Q3W
     Route: 041
     Dates: start: 20220224, end: 20220913

REACTIONS (3)
  - Immune-mediated adrenal insufficiency [Recovering/Resolving]
  - Oedema peripheral [Recovering/Resolving]
  - Product use issue [Unknown]

NARRATIVE: CASE EVENT DATE: 20220101
